FAERS Safety Report 7887796-1 (Version None)
Quarter: 2011Q4

REPORT INFORMATION
  Report Type: 
  Country: None (occurrence: None)
  Receive Date: 20111103
  Receipt Date: 20111025
  Transmission Date: 20120403
  Serious: Yes (Other)
  Sender: FDA-Public Use
  Company Number: GB-JNJFOC-20111011271

PATIENT
  Age: 70 Year
  Sex: Male

DRUGS (7)
  1. METHOTREXATE [Concomitant]
  2. DIDRONEL [Concomitant]
  3. REMICADE [Suspect]
     Indication: RHEUMATOID ARTHRITIS
     Route: 042
     Dates: start: 20020408, end: 20020715
  4. FOLIC ACID [Concomitant]
  5. DICLOFENAC [Concomitant]
  6. LANSOPRAZOLE [Concomitant]
  7. PREDNISOLONE [Concomitant]

REACTIONS (1)
  - PROSTATE CANCER [None]
